FAERS Safety Report 6166302-6 (Version None)
Quarter: 2009Q2

REPORT INFORMATION
  Report Type: 
  Country: None (occurrence: None)
  Receive Date: 20090422
  Receipt Date: 20090422
  Transmission Date: 20091009
  Serious: Yes (Other)
  Sender: FDA-Public Use
  Company Number: None

PATIENT
  Age: 65 Year
  Sex: Male
  Weight: 81.6475 kg

DRUGS (2)
  1. VYTORIN [Suspect]
     Indication: HYPERTENSION
     Dosage: 1 TABLET DAILY PO
     Route: 048
     Dates: start: 20080101, end: 20090416
  2. VYTORIN [Suspect]
     Indication: MYOCARDIAL INFARCTION
     Dosage: 1 TABLET DAILY PO
     Route: 048
     Dates: start: 20080101, end: 20090416

REACTIONS (1)
  - MYALGIA [None]
